FAERS Safety Report 14609979 (Version 1)
Quarter: 2018Q1

REPORT INFORMATION
  Report Type: Spontaneous
  Country: US (occurrence: US)
  Receive Date: 20180307
  Receipt Date: 20180307
  Transmission Date: 20180509
  Serious: Yes (Life-Threatening, Other)
  Sender: FDA-Public Use
  Company Number: None

PATIENT
  Age: 22 Year
  Sex: Female
  Weight: 53.1 kg

DRUGS (1)
  1. SOLODYN [Suspect]
     Active Substance: MINOCYCLINE HYDROCHLORIDE
     Indication: ACNE
     Dosage: ?          QUANTITY:1 TABLET(S);?
     Route: 048
     Dates: start: 20170921, end: 20170922

REACTIONS (12)
  - Mobility decreased [None]
  - Wrong technique in product usage process [None]
  - Fatigue [None]
  - Dizziness [None]
  - Pyrexia [None]
  - Vestibular ataxia [None]
  - Nausea [None]
  - Syncope [None]
  - Prescribed overdose [None]
  - Back pain [None]
  - Blood pressure decreased [None]
  - Cardiovascular disorder [None]

NARRATIVE: CASE EVENT DATE: 20160921
